FAERS Safety Report 24525328 (Version 1)
Quarter: 2024Q4

REPORT INFORMATION
  Report Type: Spontaneous
  Country: JP (occurrence: JP)
  Receive Date: 20241019
  Receipt Date: 20241019
  Transmission Date: 20250115
  Serious: Yes (Other)
  Sender: ABBVIE
  Company Number: JP-ABBVIE-5966861

PATIENT
  Age: 58 Year
  Sex: Female

DRUGS (2)
  1. CARBIDOPA\LEVODOPA [Suspect]
     Active Substance: CARBIDOPA\LEVODOPA
     Indication: Parkinson^s disease
     Dosage: FIRST ADMIN DATE: BEFORE 08 MAR 2024 AND LAST ADMIN DATE: 2024
     Route: 050
     Dates: start: 202403
  2. CARBIDOPA\LEVODOPA [Suspect]
     Active Substance: CARBIDOPA\LEVODOPA
     Dosage: FIRST ADMIN DATE: AFTER 10 APR 2024
     Route: 050
     Dates: start: 202404, end: 20240724

REACTIONS (1)
  - Deep brain stimulation [Recovering/Resolving]

NARRATIVE: CASE EVENT DATE: 20240101
